FAERS Safety Report 8434808-2 (Version None)
Quarter: 2012Q2

REPORT INFORMATION
  Report Type: 
  Country: None (occurrence: None)
  Receive Date: 20120323
  Receipt Date: 20110629
  Transmission Date: 20120825
  Serious: Yes (Other)
  Sender: FDA-Public Use
  Company Number: 163-21880-11060294

PATIENT
  Sex: Male
  Weight: 113.4 kg

DRUGS (5)
  1. PROCRIT [Concomitant]
  2. REVLIMID [Suspect]
     Indication: MULTIPLE MYELOMA
     Dosage: 25 MG, DAILY X 21 DAYS 1 WEEK OFF, PO, 10 MG, DAILY X 21 DAYS, PO, 10 MG, DAILY X 21 DAYS, PO
     Route: 048
     Dates: start: 20110101
  3. REVLIMID [Suspect]
     Indication: MULTIPLE MYELOMA
     Dosage: 25 MG, DAILY X 21 DAYS 1 WEEK OFF, PO, 10 MG, DAILY X 21 DAYS, PO, 10 MG, DAILY X 21 DAYS, PO
     Route: 048
     Dates: start: 20100810
  4. REVLIMID [Suspect]
     Indication: MULTIPLE MYELOMA
     Dosage: 25 MG, DAILY X 21 DAYS 1 WEEK OFF, PO, 10 MG, DAILY X 21 DAYS, PO, 10 MG, DAILY X 21 DAYS, PO
     Route: 048
     Dates: start: 20110601
  5. REVLIMID [Suspect]

REACTIONS (3)
  - RASH [None]
  - PANCYTOPENIA [None]
  - ANAEMIA [None]
